FAERS Safety Report 11037821 (Version 1)
Quarter: 2015Q2

REPORT INFORMATION
  Report Type: Report from Study
  Country: US (occurrence: US)
  Receive Date: 20150416
  Receipt Date: 20150416
  Transmission Date: 20150821
  Serious: Yes (Hospitalization)
  Sender: FDA-Public Use
  Company Number: US-009507513-1504USA004123

PATIENT
  Age: 75 Year
  Sex: Male

DRUGS (6)
  1. PEMBROLIZUMAB. [Suspect]
     Active Substance: PEMBROLIZUMAB
     Indication: PLASMA CELL MYELOMA
     Dosage: 200MG, QM. DAY 1 ONLY OF EVERY CYCLE, CYCLE 1
     Route: 042
     Dates: start: 20150116, end: 20150116
  2. POMALIDOMIDE [Suspect]
     Active Substance: POMALIDOMIDE
     Dosage: 4 MG, QD ON DAY 1-21,CYCLE 3
     Route: 048
     Dates: start: 20150312, end: 20150401
  3. DEXAMETHASONE. [Suspect]
     Active Substance: DEXAMETHASONE
     Indication: PLASMA CELL MYELOMA
     Dosage: 20MG, QW, ON DAY1, 8, 15 AND 22, CYCLE 1
     Route: 048
     Dates: start: 20150116, end: 20150206
  4. DEXAMETHASONE. [Suspect]
     Active Substance: DEXAMETHASONE
     Dosage: 20MG, QW, ON DAY1, 8, 15 AND 22, CYCLE 3
     Route: 048
     Dates: start: 20150312, end: 20150402
  5. POMALIDOMIDE [Suspect]
     Active Substance: POMALIDOMIDE
     Indication: PLASMA CELL MYELOMA
     Dosage: 4 MG, QD ON DAY 1-21, CYCLE 1
     Route: 048
     Dates: start: 20150116, end: 20150205
  6. PEMBROLIZUMAB. [Suspect]
     Active Substance: PEMBROLIZUMAB
     Dosage: 200MG, QM. DAY 1 ONLY OF EVERY CYCLE, CYCLE 3
     Route: 042
     Dates: start: 20150312, end: 20150312

REACTIONS (1)
  - Arthritis infective [Unknown]

NARRATIVE: CASE EVENT DATE: 20150407
